FAERS Safety Report 24990344 (Version 2)
Quarter: 2025Q1

REPORT INFORMATION
  Report Type: Spontaneous
  Country: US (occurrence: US)
  Receive Date: 20250220
  Receipt Date: 20250220
  Transmission Date: 20250409
  Serious: Yes (Hospitalization, Other)
  Sender: AMGEN
  Company Number: US-AMGEN-USASP2025029413

PATIENT
  Age: 71 Year
  Sex: Female

DRUGS (3)
  1. PREDNISONE [Suspect]
     Active Substance: PREDNISONE
     Indication: Granulomatosis with polyangiitis
     Dosage: 60 MILLIGRAM, QD, A LOW DOSE
     Route: 048
  2. PREDNISONE [Suspect]
     Active Substance: PREDNISONE
     Route: 048
  3. RITUXIMAB [Suspect]
     Active Substance: RITUXIMAB
     Indication: Granulomatosis with polyangiitis
     Dosage: UNK, Q6MO
     Route: 065

REACTIONS (8)
  - Blindness unilateral [Unknown]
  - Granulomatosis with polyangiitis [Unknown]
  - Deafness unilateral [Unknown]
  - CSF protein increased [Unknown]
  - Haemoglobin decreased [Unknown]
  - Renal mass [Unknown]
  - Drug ineffective for unapproved indication [Unknown]
  - Off label use [Unknown]
